FAERS Safety Report 8315474-3 (Version None)
Quarter: 2012Q2

REPORT INFORMATION
  Report Type: 
  Country: None (occurrence: None)
  Receive Date: 20120426
  Receipt Date: 20120416
  Transmission Date: 20120825
  Serious: Yes (Death, Hospitalization, Other)
  Sender: FDA-Public Use
  Company Number: US-MPIJNJ-2011-06487

PATIENT
  Sex: Male
  Weight: 83.9 kg

DRUGS (2)
  1. VELCADE [Suspect]
     Indication: MULTIPLE MYELOMA
     Dosage: 1.3 MG/M2, CYCLIC
     Route: 042
     Dates: start: 20110701, end: 20110811
  2. DECADRON [Concomitant]
     Indication: MULTIPLE MYELOMA
     Dosage: UNK
     Route: 065
     Dates: start: 20110701, end: 20110811

REACTIONS (7)
  - DUODENITIS [None]
  - RENAL FAILURE ACUTE [None]
  - ANAEMIA [None]
  - MULTIPLE MYELOMA [None]
  - OESOPHAGITIS [None]
  - DEATH [None]
  - ABDOMINAL PAIN [None]
